FAERS Safety Report 6045810-2 (Version None)
Quarter: 2009Q1

REPORT INFORMATION
  Report Type: 
  Country: None (occurrence: None)
  Receive Date: 20090121
  Receipt Date: 20080527
  Transmission Date: 20090719
  Serious: Yes (Death, Other)
  Sender: FDA-Public Use
  Company Number: JP-ELI_LILLY_AND_COMPANY-JP200802006728

PATIENT
  Sex: Female
  Weight: 50 kg

DRUGS (11)
  1. GEMZAR [Suspect]
     Indication: BILE DUCT CANCER
     Dosage: 1300 MG, OTHER
     Route: 042
     Dates: start: 20071206, end: 20071206
  2. SEROTONE [Concomitant]
     Indication: PROPHYLAXIS
     Dosage: 1 D/F, UNKNOWN
     Route: 042
     Dates: start: 20071206, end: 20071206
  3. DECADRON /NET/ [Concomitant]
     Indication: PROPHYLAXIS
     Dosage: 4 MG, DAILY (1/D)
     Route: 042
     Dates: start: 20071206, end: 20071206
  4. RINDERON /00008501/ [Concomitant]
     Dosage: 1 D/F, DAILY (1/D)
     Route: 048
     Dates: start: 20071206
  5. MYSLEE [Concomitant]
     Dosage: 5 MG, UNKNOWN
     Route: 048
  6. THYRADIN S [Concomitant]
     Dosage: 100 UG, DAILY (1/D)
     Route: 048
  7. LOXONIN [Concomitant]
     Dosage: 60 MG, 3/D
     Route: 048
  8. CYTOTEC [Concomitant]
     Dosage: 1 D/F, 3/D
     Route: 048
  9. TAKEPRON [Concomitant]
     Dosage: 30 MG, DAILY (1/D)
     Route: 048
  10. OXYCONTIN [Concomitant]
     Dosage: 5 MG, DAILY (1/D)
     Route: 048
     Dates: start: 20071220
  11. OXYCONTIN [Concomitant]
     Dosage: 5 MG, 3/D
     Route: 048
     Dates: start: 20071227

REACTIONS (5)
  - DISSEMINATED INTRAVASCULAR COAGULATION [None]
  - INTERSTITIAL LUNG DISEASE [None]
  - MALIGNANT NEOPLASM PROGRESSION [None]
  - METASTASES TO LUNG [None]
  - METASTASES TO PERITONEUM [None]
